FAERS Safety Report 21724238 (Version 1)
Quarter: 2022Q4

REPORT INFORMATION
  Report Type: Spontaneous
  Country: US (occurrence: US)
  Receive Date: 20221213
  Receipt Date: 20221213
  Transmission Date: 20230113
  Serious: No
  Sender: FDA-Public Use
  Company Number: US-ALLERGAN-2233792US

PATIENT
  Sex: Female

DRUGS (1)
  1. DURYSTA [Suspect]
     Active Substance: BIMATOPROST
     Indication: Ocular hypertension
     Dosage: 0.01 MG, SINGLE
     Route: 047
     Dates: start: 202205, end: 2022

REACTIONS (1)
  - Keratitis [Recovering/Resolving]
